FAERS Safety Report 10144653 (Version 1)
Quarter: 2014Q2

REPORT INFORMATION
  Report Type: Spontaneous
  Country: US (occurrence: US)
  Receive Date: 20140430
  Receipt Date: 20140430
  Transmission Date: 20141212
  Serious: No
  Sender: FDA-Public Use
  Company Number: US-SANOFI-AVENTIS-2013SA055586

PATIENT
  Age: 67 Year
  Sex: Female
  Weight: 59.87 kg

DRUGS (1)
  1. LOVENOX [Suspect]
     Indication: THROMBOSIS PROPHYLAXIS
     Dosage: SINCE TWO WEEK AGO

REACTIONS (2)
  - Adverse drug reaction [Recovered/Resolved]
  - Injection site pain [Recovered/Resolved]
